FAERS Safety Report 12831673 (Version 2)
Quarter: 2016Q4

REPORT INFORMATION
  Report Type: Report from Study
  Country: NL (occurrence: NL)
  Receive Date: 20161010
  Receipt Date: 20161028
  Transmission Date: 20170207
  Serious: Yes (Hospitalization)
  Sender: FDA-Public Use
  Company Number: NL-ROCHE-1839145

PATIENT
  Age: 77 Year
  Sex: Male
  Weight: 83.6 kg

DRUGS (14)
  1. DICLOFENAC [Concomitant]
     Active Substance: DICLOFENAC
     Route: 065
     Dates: start: 20160803, end: 20160806
  2. METOPROLOL. [Concomitant]
     Active Substance: METOPROLOL
     Route: 065
     Dates: end: 20160819
  3. CAPECITABINE. [Suspect]
     Active Substance: CAPECITABINE
     Indication: ADENOCARCINOMA GASTRIC
     Dosage: DAY 1 TO 14?MOST RECENT DOSE RECEIVED PRIOR TO ADVERSE EVENT ON 19/AUG/2016
     Route: 048
     Dates: start: 20160805, end: 20160825
  4. ONDANSETRON [Concomitant]
     Active Substance: ONDANSETRON
  5. VALSARTAN. [Concomitant]
     Active Substance: VALSARTAN
     Route: 065
     Dates: start: 20160321
  6. CISPLATIN. [Suspect]
     Active Substance: CISPLATIN
     Indication: ADENOCARCINOMA GASTRIC
     Dosage: 80 MG/M2 ON DAY 1?MOST RECENT DOSE RECEIVED PRIOR TO ADVERSE EVENT ON 05/AUG/2016
     Route: 042
     Dates: start: 20160805, end: 20160825
  7. HYDROXOCOBALAMIN [Concomitant]
     Active Substance: HYDROXOCOBALAMIN
     Route: 065
     Dates: start: 20160721
  8. FRAGMIN [Concomitant]
     Active Substance: DALTEPARIN SODIUM
     Route: 065
     Dates: start: 20160819
  9. MOVICOLON [Concomitant]
     Active Substance: POLYETHYLENE GLYCOL 3350\POTASSIUM CHLORIDE\SODIUM BICARBONATE\SODIUM CHLORIDE
     Route: 065
     Dates: start: 20160803, end: 20160806
  10. RANITIDINE. [Concomitant]
     Active Substance: RANITIDINE
  11. CLEMASTINE [Concomitant]
     Active Substance: CLEMASTINE
  12. APREPITANT. [Concomitant]
     Active Substance: APREPITANT
     Route: 065
     Dates: start: 20160805
  13. METOCLOPRAMIDE. [Concomitant]
     Active Substance: METOCLOPRAMIDE
  14. DEXAMETHASONE. [Concomitant]
     Active Substance: DEXAMETHASONE
     Route: 065
     Dates: start: 20160805

REACTIONS (2)
  - Asthenia [Recovered/Resolved]
  - Malnutrition [Recovered/Resolved]

NARRATIVE: CASE EVENT DATE: 20160819
